FAERS Safety Report 5745321-5 (Version None)
Quarter: 2008Q2

REPORT INFORMATION
  Report Type: 
  Country: None (occurrence: None)
  Receive Date: 20080521
  Receipt Date: 20080509
  Transmission Date: 20081010
  Serious: Yes (Other)
  Sender: FDA-Public Use
  Company Number: DE-ROCHE-544737

PATIENT
  Sex: Female

DRUGS (1)
  1. CELLCEPT [Suspect]
     Indication: APLASTIC ANAEMIA
     Route: 065
     Dates: start: 20010101

REACTIONS (2)
  - HYPOGLYCAEMIA [None]
  - INSULINOMA [None]
